FAERS Safety Report 15592645 (Version 11)
Quarter: 2019Q3

REPORT INFORMATION
  Report Type: Report from Study
  Country: US (occurrence: US)
  Receive Date: 20181107
  Receipt Date: 20190919
  Transmission Date: 20191004
  Serious: Yes (Hospitalization)
  Sender: FDA-Public Use
  Company Number: PHEH2018US046933

PATIENT
  Age: 10 Year
  Sex: Female

DRUGS (3)
  1. PREDNISONE. [Concomitant]
     Active Substance: PREDNISONE
     Indication: PRODUCT USED FOR UNKNOWN INDICATION
     Dosage: UNK, FOR 6 DAYS
     Route: 065
     Dates: start: 20190822
  2. ILARIS [Suspect]
     Active Substance: CANAKINUMAB
     Indication: CRYOPYRIN ASSOCIATED PERIODIC SYNDROME
     Dosage: 40 MG, EVERY 4 WEEKS
     Route: 058
     Dates: start: 20180611
  3. ILARIS [Suspect]
     Active Substance: CANAKINUMAB
     Dosage: 60 MG, EVERY 4 WEEKS
     Route: 058
     Dates: start: 20180611

REACTIONS (8)
  - Dizziness [Unknown]
  - Diarrhoea [Unknown]
  - Pyrexia [Recovering/Resolving]
  - Vomiting [Unknown]
  - Headache [Unknown]
  - Pain [Unknown]
  - Asthma [Unknown]
  - Vertigo [Unknown]

NARRATIVE: CASE EVENT DATE: 20190510
